FAERS Safety Report 8599266-6 (Version None)
Quarter: 2012Q3

REPORT INFORMATION
  Report Type: 
  Country: None (occurrence: None)
  Receive Date: 20120816
  Receipt Date: 20120323
  Transmission Date: 20120928
  Serious: No
  Sender: FDA-Public Use
  Company Number: US-AMGEN-USASP2012019207

PATIENT
  Age: 64 Year
  Sex: Male
  Weight: 76 kg

DRUGS (1)
  1. FILGRASTIM [Suspect]
     Indication: BREAST CANCER
     Dosage: UNK

REACTIONS (1)
  - EJECTION FRACTION DECREASED [None]
